FAERS Safety Report 4349671-9 (Version None)
Quarter: 2004Q2

REPORT INFORMATION
  Report Type: 
  Country: None (occurrence: None)
  Receive Date: 20040426
  Receipt Date: 20030829
  Transmission Date: 20050107
  Serious: Yes (Life-Threatening, Hospitalization, Other)
  Sender: FDA-Public Use
  Company Number: 2003029618

PATIENT
  Sex: Male

DRUGS (2)
  1. ZITHROMAX [Suspect]
     Indication: IMPETIGO
     Dosage: 250 MG (DAILY), ORAL
     Route: 048
     Dates: start: 20030518, end: 20030522
  2. IBUPROFEN [Concomitant]

REACTIONS (1)
  - STEVENS-JOHNSON SYNDROME [None]
